FAERS Safety Report 10243223 (Version 1)
Quarter: 2014Q2

REPORT INFORMATION
  Report Type: Spontaneous
  Country: US (occurrence: None)
  Receive Date: 20140616
  Receipt Date: 20140616
  Transmission Date: 20141212
  Serious: Yes (Other)
  Sender: FDA-Public Use
  Company Number: US-015926

PATIENT
  Age: 54 Year
  Sex: Male
  Weight: 102.97 kg

DRUGS (1)
  1. PICO-SALAX [Suspect]
     Indication: BOWEL PREPARATION
     Dosage: 1ST PACK AND 2ND PACK ON 01 JUN 2014
     Dates: start: 20140601, end: 20140601

REACTIONS (5)
  - Loss of consciousness [None]
  - Hypokalaemia [None]
  - Fall [None]
  - Head injury [None]
  - Laceration [None]
